FAERS Safety Report 24143461 (Version 1)
Quarter: 2024Q3

REPORT INFORMATION
  Report Type: Spontaneous
  Country: JP (occurrence: JP)
  Receive Date: 20240727
  Receipt Date: 20240727
  Transmission Date: 20241017
  Serious: Yes (Other)
  Sender: ACCORD
  Company Number: JP-MLMSERVICE-20240710-PI125212-00249-1

PATIENT
  Age: 48 Year
  Sex: Male

DRUGS (7)
  1. FLUOROURACIL [Suspect]
     Active Substance: FLUOROURACIL
     Indication: Tumour rupture
     Dosage: CONTINUOUS INFUSION OVER 46 HOURS WITHOUT BOLUS
  2. IRINOTECAN [Suspect]
     Active Substance: IRINOTECAN
     Indication: Tumour rupture
  3. OXALIPLATIN [Suspect]
     Active Substance: OXALIPLATIN
     Indication: Acinar cell carcinoma of pancreas
  4. LEVOLEUCOVORIN CALCIUM [Suspect]
     Active Substance: LEVOLEUCOVORIN CALCIUM
     Indication: Tumour rupture
  5. LEVOLEUCOVORIN CALCIUM [Suspect]
     Active Substance: LEVOLEUCOVORIN CALCIUM
     Indication: Acinar cell carcinoma of pancreas
  6. IRINOTECAN [Suspect]
     Active Substance: IRINOTECAN
     Indication: Acinar cell carcinoma of pancreas
  7. OXALIPLATIN [Suspect]
     Active Substance: OXALIPLATIN
     Indication: Tumour rupture

REACTIONS (2)
  - Fatigue [Unknown]
  - Neuropathy peripheral [Unknown]
